FAERS Safety Report 26170798 (Version 1)
Quarter: 2025Q4

REPORT INFORMATION
  Report Type: Report from Study
  Country: CN (occurrence: CN)
  Receive Date: 20251217
  Receipt Date: 20251217
  Transmission Date: 20260118
  Serious: Yes (Hospitalization)
  Sender: SANOFI AVENTIS
  Company Number: CN-SA-2025SA373013

PATIENT
  Age: 66 Year
  Sex: Male

DRUGS (4)
  1. DUPILUMAB [Suspect]
     Active Substance: DUPILUMAB
     Indication: Dermatitis atopic
     Dosage: 300 MG, QOW
     Route: 058
     Dates: start: 202502
  2. INSULIN NOS [Suspect]
     Active Substance: INSULIN NOS
     Indication: Diabetes mellitus
     Dosage: UNK
  3. INSULIN NOS [Suspect]
     Active Substance: INSULIN NOS
     Indication: Blood glucose increased
     Dosage: UNK
     Dates: start: 20251203
  4. INSULIN NOS [Suspect]
     Active Substance: INSULIN NOS
     Indication: Blood glucose fluctuation

REACTIONS (2)
  - Blood glucose fluctuation [Recovering/Resolving]
  - Blood glucose increased [Recovering/Resolving]

NARRATIVE: CASE EVENT DATE: 20251203
